FAERS Safety Report 6887398-X (Version None)
Quarter: 2010Q3

REPORT INFORMATION
  Report Type: 
  Country: None (occurrence: None)
  Receive Date: 20100730
  Receipt Date: 20100204
  Transmission Date: 20110219
  Serious: No
  Sender: FDA-Public Use
  Company Number: A0843006A

PATIENT
  Age: 52 Year
  Sex: Female

DRUGS (4)
  1. IMITREX [Suspect]
     Indication: MIGRAINE
     Dosage: 25MG AS REQUIRED
     Route: 048
     Dates: start: 19950101
  2. IMITREX [Suspect]
     Dosage: 20MG AS REQUIRED
     Route: 045
     Dates: start: 19980101
  3. SIMVASTATIN [Concomitant]
  4. LEVAQUIN [Concomitant]

REACTIONS (1)
  - DRUG INEFFECTIVE [None]
